FAERS Safety Report 14608499 (Version 1)
Quarter: 2018Q1

REPORT INFORMATION
  Report Type: Spontaneous
  Country: FR (occurrence: FR)
  Receive Date: 20180307
  Receipt Date: 20180307
  Transmission Date: 20180509
  Serious: Yes (Hospitalization)
  Sender: FDA-Public Use
  Company Number: FR-UCBSA-2018008526

PATIENT
  Age: 71 Year
  Sex: Male

DRUGS (5)
  1. DEPAKINE [Suspect]
     Active Substance: VALPROATE SODIUM
     Indication: EPILEPSY
     Dosage: 1000 MG DAILY DOSE (1-0-1), 2X/DAY (BID)
     Route: 048
     Dates: start: 20180127, end: 20180207
  2. ZONEGRAN [Concomitant]
     Active Substance: ZONISAMIDE
     Indication: EPILEPSY
     Dosage: 250 MG DAILY DOSE
     Route: 048
     Dates: start: 201709
  3. ALEPSAL (ATROPA BELLADONNA\CAFFEINE\PHENOBARBITAL) [Concomitant]
     Active Substance: ATROPA BELLADONNA\CAFFEINE\PHENOBARBITAL
     Indication: EPILEPSY
     Dosage: 1-0-1
     Route: 048
  4. KEPPRA [Suspect]
     Active Substance: LEVETIRACETAM
     Indication: EPILEPSY
     Dosage: 1000 MG DAILY DOSE
     Route: 048
     Dates: start: 20180110
  5. URBANYL [Suspect]
     Active Substance: CLOBAZAM
     Indication: EPILEPSY
     Dosage: 30 MG DAILY DOSE, 3X/DAY (TID) (1-1-4)
     Route: 048
     Dates: start: 20180110

REACTIONS (1)
  - Encephalopathy [Recovering/Resolving]

NARRATIVE: CASE EVENT DATE: 20180202
